FAERS Safety Report 10785005 (Version 1)
Quarter: 2015Q1

REPORT INFORMATION
  Report Type: Spontaneous
  Country: US (occurrence: US)
  Receive Date: 20150211
  Receipt Date: 20150211
  Transmission Date: 20150721
  Serious: No
  Sender: FDA-Public Use
  Company Number: US-GLAXOSMITHKLINE-A1076696A

PATIENT

DRUGS (2)
  1. WELLBUTRIN SR MODIFIED-RELEASE TABLET [Concomitant]
     Indication: PRODUCT USED FOR UNKNOWN INDICATION
     Route: 065
     Dates: start: 20110428
  2. LAMICTAL [Suspect]
     Active Substance: LAMOTRIGINE
     Indication: NERVOUS SYSTEM DISORDER
     Route: 065
     Dates: start: 20110428

REACTIONS (1)
  - Incorrect dose administered [Unknown]
